FAERS Safety Report 19012146 (Version 1)
Quarter: 2021Q1

REPORT INFORMATION
  Report Type: Spontaneous
  Country: DE (occurrence: DE)
  Receive Date: 20210315
  Receipt Date: 20210315
  Transmission Date: 20210420
  Serious: Yes (Hospitalization)
  Sender: FDA-Public Use
  Company Number: NVSC2021DE052147

PATIENT
  Sex: Male
  Weight: 80 kg

DRUGS (1)
  1. EXJADE [Suspect]
     Active Substance: DEFERASIROX
     Indication: PRODUCT USED FOR UNKNOWN INDICATION
     Dosage: 360 MG, 6QD
     Route: 065
     Dates: end: 20210220

REACTIONS (4)
  - Coagulation time shortened [Recovering/Resolving]
  - Hepatic failure [Unknown]
  - Gastrointestinal disorder [Recovering/Resolving]
  - Transaminases increased [Recovering/Resolving]
